FAERS Safety Report 8148700 (Version 2)
Quarter: 2013Q1

REPORT INFORMATION
  Report Type: Spontaneous
  Country: US (occurrence: US)
  Receive Date: 20110922
  Receipt Date: 20130215
  Transmission Date: 20140127
  Serious: Yes (Other)
  Sender: FDA-Public Use
  Company Number: US-ASTRAZENECA-2011SE12724

PATIENT
  Age: 660 Month
  Sex: Male
  Weight: 94.8 kg

DRUGS (6)
  1. SEROQUEL [Suspect]
     Route: 048
     Dates: start: 20061019
  2. FAMOTIDINE [Concomitant]
     Dates: start: 20121126
  3. LORATADINE [Concomitant]
     Route: 048
     Dates: start: 20121126
  4. NORCO [Concomitant]
     Indication: PAIN
     Dosage: 10 - 325 MG TAKE 1 TABLET ORAL ROUTR 4X DAILY AS NEEDED FOR PAIN
     Route: 048
     Dates: start: 201211
  5. BENADRYL [Concomitant]
     Dates: end: 20061019
  6. ZOLOFT [Concomitant]
     Route: 048
     Dates: start: 20061019

REACTIONS (4)
  - Pancreatitis [Unknown]
  - Diabetic coma [Unknown]
  - Diabetic nephropathy [Unknown]
  - Type 2 diabetes mellitus [Unknown]
